FAERS Safety Report 5387670-9 (Version None)
Quarter: 2007Q3

REPORT INFORMATION
  Report Type: 
  Country: None (occurrence: None)
  Receive Date: 20070712
  Receipt Date: 20070712
  Transmission Date: 20080115
  Serious: Yes (Hospitalization)
  Sender: FDA-Public Use
  Company Number: None

PATIENT
  Age: 67 Year
  Sex: Male

DRUGS (3)
  1. ENOXAPARIN SODIUM [Suspect]
     Indication: ACUTE MYOCARDIAL INFARCTION
     Dosage: 100MG Q12H
     Dates: start: 20070702, end: 20070704
  2. ENOXAPARIN SODIUM [Suspect]
     Indication: CORONARY ARTERY BYPASS
     Dosage: 100MG Q12H
     Dates: start: 20070702, end: 20070704
  3. HEPARIN [Suspect]
     Dosage: PER PROTOCOL
     Dates: start: 20070624, end: 20070626

REACTIONS (2)
  - ANTIBODY TEST POSITIVE [None]
  - PLATELET COUNT DECREASED [None]
